FAERS Safety Report 25922163 (Version 1)
Quarter: 2025Q4

REPORT INFORMATION
  Report Type: Spontaneous
  Country: US (occurrence: US)
  Receive Date: 20251015
  Receipt Date: 20251015
  Transmission Date: 20260118
  Serious: Yes (Hospitalization, Other)
  Sender: CSL BEHRING
  Company Number: US-BEH-2025221195

PATIENT
  Age: 41 Year

DRUGS (2)
  1. IDELVION [Suspect]
     Active Substance: COAGULATION FACTOR IX RECOMBINANT HUMAN
     Indication: Product used for unknown indication
     Dosage: 40 IU/KG, QW, 40 IU/KG, ON DAYS 5 AND 7, THEN WEEKLY
     Route: 065
  2. IDELVION [Suspect]
     Active Substance: COAGULATION FACTOR IX RECOMBINANT HUMAN
     Indication: Product used for unknown indication
     Dosage: 40 IU/KG, QW, 40 IU/KG, ON DAYS 5 AND 7, THEN WEEKLY
     Route: 065

REACTIONS (2)
  - Cholecystitis acute [Unknown]
  - Gallbladder abscess [Unknown]
